FAERS Safety Report 21208759 (Version 1)
Quarter: 2022Q3

REPORT INFORMATION
  Report Type: Report from Study
  Country: AR (occurrence: AR)
  Receive Date: 20220812
  Receipt Date: 20220812
  Transmission Date: 20221027
  Serious: Yes (Other)
  Sender: FDA-Public Use
  Company Number: AR-NOVARTISPH-NVSC2022AR174998

PATIENT
  Age: 66 Year
  Sex: Male

DRUGS (6)
  1. AFINITOR [Suspect]
     Active Substance: EVEROLIMUS
     Indication: Neuroendocrine tumour
     Dosage: 5 MG, QD
     Route: 048
     Dates: start: 20191202
  2. ZOLEDRONIC ACID [Suspect]
     Active Substance: ZOLEDRONIC ACID
     Indication: Neuroendocrine tumour
     Dosage: UNK
     Route: 065
     Dates: start: 2019
  3. SUNITINIB [Concomitant]
     Active Substance: SUNITINIB
     Indication: Neuroendocrine tumour
     Dosage: UNK
     Route: 065
     Dates: start: 2019
  4. AXITINIB [Concomitant]
     Active Substance: AXITINIB
     Indication: Neuroendocrine tumour
     Dosage: UNK
     Route: 065
     Dates: start: 2019
  5. LENVATINIB [Concomitant]
     Active Substance: LENVATINIB
     Indication: Neuroendocrine tumour
     Dosage: UNK
     Route: 065
     Dates: start: 2019
  6. METHADONE [Concomitant]
     Active Substance: METHADONE HYDROCHLORIDE
     Indication: Product used for unknown indication
     Dosage: UNK
     Route: 065

REACTIONS (10)
  - Neuroendocrine tumour [Unknown]
  - Malignant neoplasm progression [Unknown]
  - Renal cancer [Unknown]
  - Second primary malignancy [Unknown]
  - Pain [Unknown]
  - Movement disorder [Unknown]
  - Lymphadenopathy [Unknown]
  - Ligament disorder [Unknown]
  - Bone pain [Unknown]
  - Myalgia [Unknown]

NARRATIVE: CASE EVENT DATE: 20220401
